FAERS Safety Report 7571715-1 (Version None)
Quarter: 2011Q2

REPORT INFORMATION
  Report Type: 
  Country: None (occurrence: None)
  Receive Date: 20110624
  Receipt Date: 20101015
  Transmission Date: 20111010
  Serious: Yes (Death, Hospitalization)
  Sender: FDA-Public Use
  Company Number: AT-CEPHALON-2011003271

PATIENT
  Sex: Male
  Weight: 70 kg

DRUGS (3)
  1. BENDAMUSTINE HCL [Suspect]
     Indication: CHRONIC LYMPHOCYTIC LEUKAEMIA
     Route: 042
     Dates: start: 20100615, end: 20100616
  2. VALCYTE [Concomitant]
     Dates: start: 20100212
  3. LIDAPRIM [Concomitant]
     Dates: start: 20100201, end: 20101023

REACTIONS (6)
  - SEPSIS [None]
  - PNEUMONIA [None]
  - EPSTEIN-BARR VIRUS ASSOCIATED LYMPHOPROLIFERATIVE DISORDER [None]
  - NEUTROPENIA [None]
  - MULTI-ORGAN FAILURE [None]
  - SEPTIC SHOCK [None]
